FAERS Safety Report 9911153 (Version 2)
Quarter: 2014Q1

REPORT INFORMATION
  Report Type: Spontaneous
  Country: US (occurrence: US)
  Receive Date: 20140219
  Receipt Date: 20140219
  Transmission Date: 20141002
  Serious: No
  Sender: FDA-Public Use
  Company Number: US-GILEAD-2012-0052471

PATIENT
  Age: 18 Year
  Sex: Female

DRUGS (4)
  1. LETAIRIS [Suspect]
     Indication: PRODUCT USED FOR UNKNOWN INDICATION
     Dosage: 10 MG, UNK
     Route: 048
     Dates: start: 20110618
  2. REVATIO [Concomitant]
  3. TYVASO [Concomitant]
  4. TRACLEER [Concomitant]

REACTIONS (4)
  - Dizziness [Unknown]
  - Oral discomfort [Unknown]
  - Unevaluable event [Unknown]
  - Hypersensitivity [Unknown]
